FAERS Safety Report 17925848 (Version 1)
Quarter: 2020Q2

REPORT INFORMATION
  Report Type: Spontaneous
  Country: US (occurrence: US)
  Receive Date: 20200622
  Receipt Date: 20200622
  Transmission Date: 20200714
  Serious: Yes (Other)
  Sender: FDA-Public Use
  Company Number: US-PURDUE-USA-2020-0153210

PATIENT
  Sex: Male

DRUGS (1)
  1. MORPHINE SULFATE (SIMILAR TO NDA 19-516) [Suspect]
     Active Substance: MORPHINE SULFATE
     Dosage: 60 MG, UNK
     Route: 048

REACTIONS (5)
  - Mental disability [Unknown]
  - Drug dependence [Unknown]
  - Cardiac arrest [Unknown]
  - Overdose [Unknown]
  - Speech disorder [Unknown]

NARRATIVE: CASE EVENT DATE: 200801
